FAERS Safety Report 16160710 (Version 2)
Quarter: 2019Q2

REPORT INFORMATION
  Report Type: Spontaneous
  Country: JP (occurrence: US)
  Receive Date: 20190405
  Receipt Date: 20190501
  Transmission Date: 20190711
  Serious: Yes (Death, Life-Threatening, Other)
  Sender: FDA-Public Use
  Company Number: US-CONCORDIA PHARMACEUTICALS INC.-GSH201903-000896

PATIENT
  Age: 8 Year
  Sex: Female

DRUGS (4)
  1. CYCLOSPORINE A [Suspect]
     Active Substance: CYCLOSPORINE
  2. AMLODIPINE [Suspect]
     Active Substance: AMLODIPINE BESYLATE
  3. PREDNISONE. [Suspect]
     Active Substance: PREDNISONE
  4. PREDNISOLONE. [Suspect]
     Active Substance: PREDNISOLONE

REACTIONS (5)
  - Hydrocephalus [Fatal]
  - Brain oedema [Fatal]
  - Posterior reversible encephalopathy syndrome [Fatal]
  - Brain herniation [Fatal]
  - Cerebral haemorrhage [Fatal]
